FAERS Safety Report 9442756 (Version 1)
Quarter: 2013Q3

REPORT INFORMATION
  Report Type: Spontaneous
  Country: US (occurrence: US)
  Receive Date: 20130806
  Receipt Date: 20130806
  Transmission Date: 20140515
  Serious: No
  Sender: FDA-Public Use
  Company Number: US-ABBOTT-13P-163-1114286-00

PATIENT
  Age: 36 Year
  Sex: Male
  Weight: 59.02 kg

DRUGS (6)
  1. DEPAKOTE ER [Suspect]
     Indication: CONVULSION
     Dosage: 750MG IN THE MORNING AND 500MG AT NIGHT (250 AND 500 MG TABLETS), PAST DEPAKOTE
     Route: 048
     Dates: start: 2011
  2. ASPIRIN [Suspect]
     Indication: STURGE-WEBER SYNDROME
     Dosage: TEN IN THE EVENING, SUN, MON, TUES
     Route: 048
     Dates: start: 20130621
  3. ASPIRIN [Suspect]
     Indication: ANGIOPATHY
  4. TEGRETOL XR [Concomitant]
     Indication: PRODUCT USED FOR UNKNOWN INDICATION
  5. KEPPRA [Concomitant]
     Indication: PRODUCT USED FOR UNKNOWN INDICATION
  6. SYNTHROID [Concomitant]
     Indication: THYROID DISORDER

REACTIONS (1)
  - Dizziness [Not Recovered/Not Resolved]
